FAERS Safety Report 14911752 (Version 1)
Quarter: 2018Q2

REPORT INFORMATION
  Report Type: Spontaneous
  Country: FR (occurrence: FR)
  Receive Date: 20180518
  Receipt Date: 20180518
  Transmission Date: 20180711
  Serious: Yes (Disabling)
  Sender: FDA-Public Use
  Company Number: FR-MERCK KGAA-2048035

PATIENT
  Age: 51 Year
  Sex: Male

DRUGS (1)
  1. NOVOTHYROX [Suspect]
     Active Substance: LEVOTHYROXINE SODIUM
     Indication: PRODUCT USED FOR UNKNOWN INDICATION
     Dates: start: 201702

REACTIONS (10)
  - Amnesia [None]
  - Gait disturbance [None]
  - Muscle spasms [None]
  - Decreased activity [None]
  - Personal relationship issue [None]
  - Tendon disorder [None]
  - Feeling abnormal [None]
  - Impaired work ability [None]
  - Emotional distress [None]
  - Thyroxine free increased [None]

NARRATIVE: CASE EVENT DATE: 20170326
